FAERS Safety Report 10142670 (Version 2)
Quarter: 2014Q2

REPORT INFORMATION
  Report Type: Spontaneous
  Country: US (occurrence: None)
  Receive Date: 20140425
  Receipt Date: 20140506
  Transmission Date: 20141212
  Serious: Yes (Hospitalization, Other)
  Sender: FDA-Public Use
  Company Number: AUR-APL-2014-04732

PATIENT
  Age: 33 Year
  Sex: Female

DRUGS (1)
  1. FLUOXETINE [Suspect]
     Indication: OBSESSIVE-COMPULSIVE DISORDER
     Route: 048

REACTIONS (9)
  - Headache [None]
  - Cerebral vasoconstriction [None]
  - Hypertension [None]
  - Caesarean section [None]
  - Exposure during pregnancy [None]
  - Sleep disorder [None]
  - Nausea [None]
  - Vomiting [None]
  - Drug ineffective [None]
